FAERS Safety Report 6345211-3 (Version None)
Quarter: 2009Q3

REPORT INFORMATION
  Report Type: 
  Country: None (occurrence: None)
  Receive Date: 20090909
  Receipt Date: 20090831
  Transmission Date: 20100115
  Serious: Yes (Other)
  Sender: FDA-Public Use
  Company Number: CA-ASTRAZENECA-2009UW21884

PATIENT
  Age: 780 Month
  Sex: Female
  Weight: 84.4 kg

DRUGS (9)
  1. ARIMIDEX [Suspect]
     Route: 048
     Dates: start: 20090423
  2. LITHIUM [Concomitant]
     Route: 048
  3. VASOTEC [Concomitant]
     Route: 048
  4. AMITRIPTYLINE [Concomitant]
     Route: 048
  5. OXYCONTIN [Concomitant]
     Route: 048
     Dates: start: 20080101
  6. CLONAZEPAM [Concomitant]
     Route: 048
     Dates: start: 19900101
  7. ADALAT CC [Concomitant]
     Route: 048
     Dates: start: 20060101
  8. VALPROIC ACID [Concomitant]
     Dates: end: 20090626
  9. PROPRANOLOL [Concomitant]

REACTIONS (4)
  - ASTHENIA [None]
  - FATIGUE [None]
  - FEELING COLD [None]
  - NAUSEA [None]
